FAERS Safety Report 25049389 (Version 6)
Quarter: 2025Q2

REPORT INFORMATION
  Report Type: Spontaneous
  Country: CA (occurrence: CA)
  Receive Date: 20250307
  Receipt Date: 20250607
  Transmission Date: 20250716
  Serious: Yes (Hospitalization, Other)
  Sender: CELLTRION
  Company Number: CA-PFIZER INC-202500020300

PATIENT

DRUGS (2)
  1. INFLECTRA [Suspect]
     Active Substance: INFLIXIMAB-DYYB
     Indication: Crohn^s disease
     Route: 042
     Dates: start: 20241112
  2. INFLECTRA [Suspect]
     Active Substance: INFLIXIMAB-DYYB
     Route: 042
     Dates: start: 20250218

REACTIONS (16)
  - Pyrexia [Unknown]
  - Fatigue [Unknown]
  - Diarrhoea [Unknown]
  - Nausea [Unknown]
  - Vomiting [Unknown]
  - Blood potassium increased [Unknown]
  - Blood sodium decreased [Unknown]
  - Urine output decreased [Unknown]
  - Abdominal pain [Recovered/Resolved]
  - Asthenia [Recovering/Resolving]
  - Condition aggravated [Unknown]
  - Productive cough [Not Recovered/Not Resolved]
  - Urinary tract infection [Not Recovered/Not Resolved]
  - Micturition urgency [Not Recovered/Not Resolved]
  - Sinusitis [Unknown]
  - Off label use [Unknown]

NARRATIVE: CASE EVENT DATE: 20250101
